FAERS Safety Report 8819402 (Version 1)
Quarter: 2012Q4

REPORT INFORMATION
  Report Type: Spontaneous
  Country: US (occurrence: None)
  Receive Date: 20121003
  Receipt Date: 20121003
  Transmission Date: 20130627
  Serious: Yes (Hospitalization, Other)
  Sender: FDA-Public Use
  Company Number: 2012P1059076

PATIENT
  Age: 52 Year
  Sex: Female
  Weight: 55.79 kg

DRUGS (1)
  1. FENTANYL PATCH [Suspect]
     Dosage: Q72H
     Route: 062
     Dates: start: 2012

REACTIONS (4)
  - Drug effect decreased [None]
  - Plasma protein metabolism disorder [None]
  - Weight increased [None]
  - Breakthrough pain [None]
